FAERS Safety Report 18614892 (Version 12)
Quarter: 2025Q1

REPORT INFORMATION
  Report Type: Report from Study
  Country: US (occurrence: US)
  Receive Date: 20201214
  Receipt Date: 20250320
  Transmission Date: 20250409
  Serious: Yes (Other)
  Sender: TAKEDA
  Company Number: US-TAKEDA-US202015908

PATIENT
  Sex: Female

DRUGS (4)
  1. HUMAN IMMUNOGLOBULIN G\HYALURONIDASE RECOMBINANT HUMAN [Suspect]
     Active Substance: HUMAN IMMUNOGLOBULIN G\HYALURONIDASE (HUMAN RECOMBINANT)
     Indication: Primary immunodeficiency syndrome
  2. HUMAN IMMUNOGLOBULIN G\HYALURONIDASE RECOMBINANT HUMAN [Suspect]
     Active Substance: HUMAN IMMUNOGLOBULIN G\HYALURONIDASE (HUMAN RECOMBINANT)
     Indication: Immunodeficiency common variable
  3. HUMAN IMMUNOGLOBULIN G\HYALURONIDASE RECOMBINANT HUMAN [Suspect]
     Active Substance: HUMAN IMMUNOGLOBULIN G\HYALURONIDASE (HUMAN RECOMBINANT)
  4. METHOTREXATE [Suspect]
     Active Substance: METHOTREXATE
     Indication: Rheumatoid arthritis

REACTIONS (26)
  - Rheumatoid arthritis [Recovering/Resolving]
  - Pneumonia bacterial [Unknown]
  - Pneumonia fungal [Recovering/Resolving]
  - Visual impairment [Recovering/Resolving]
  - Sinus disorder [Recovering/Resolving]
  - Gastrointestinal disorder [Unknown]
  - Pain [Unknown]
  - Breast neoplasm [Unknown]
  - Gastrointestinal microorganism overgrowth [Unknown]
  - Scoliosis [Unknown]
  - Insurance issue [Unknown]
  - Muscle strain [Unknown]
  - Fall [Unknown]
  - Musculoskeletal discomfort [Unknown]
  - Memory impairment [Unknown]
  - Chapped lips [Unknown]
  - Vision blurred [Unknown]
  - Post-acute COVID-19 syndrome [Unknown]
  - Mental fatigue [Unknown]
  - Sinusitis [Unknown]
  - Food intolerance [Not Recovered/Not Resolved]
  - Viral infection [Recovering/Resolving]
  - Asthenia [Unknown]
  - Feeling hot [Unknown]
  - Hyperhidrosis [Unknown]
  - Fatigue [Unknown]

NARRATIVE: CASE EVENT DATE: 20140101
